FAERS Safety Report 19360218 (Version 1)
Quarter: 2021Q2

REPORT INFORMATION
  Report Type: Spontaneous
  Country: US (occurrence: US)
  Receive Date: 20210601
  Receipt Date: 20210601
  Transmission Date: 20210717
  Serious: Yes (Other)
  Sender: FDA-Public Use
  Company Number: US-ACCORD-226399

PATIENT
  Age: 19 Year
  Sex: Female

DRUGS (5)
  1. DOXORUBICIN [Suspect]
     Active Substance: DOXORUBICIN
     Indication: ADRENOCORTICAL CARCINOMA
  2. MITOTANE [Concomitant]
     Active Substance: MITOTANE
     Indication: ADRENOCORTICAL CARCINOMA
  3. DEXRAZOXANE. [Concomitant]
     Active Substance: DEXRAZOXANE
     Indication: ADRENOCORTICAL CARCINOMA
  4. ETOPOSIDE. [Suspect]
     Active Substance: ETOPOSIDE
     Indication: ADRENOCORTICAL CARCINOMA
  5. CISPLATIN. [Suspect]
     Active Substance: CISPLATIN
     Indication: ADRENOCORTICAL CARCINOMA

REACTIONS (3)
  - Off label use [Unknown]
  - Cardiomyopathy [Recovering/Resolving]
  - Ejection fraction decreased [Recovering/Resolving]
